FAERS Safety Report 18207313 (Version 2)
Quarter: 2020Q4

REPORT INFORMATION
  Report Type: Spontaneous
  Country: US (occurrence: US)
  Receive Date: 20200828
  Receipt Date: 20201020
  Transmission Date: 20210113
  Serious: Yes (Hospitalization, Other)
  Sender: FDA-Public Use
  Company Number: US-PFIZER INC-2020332161

PATIENT
  Age: 74 Year
  Sex: Male

DRUGS (2)
  1. INLYTA [Suspect]
     Active Substance: AXITINIB
     Indication: RENAL CANCER
     Dosage: 7 MG (EVERY 12 HOURS)
     Route: 048
     Dates: start: 201912
  2. INLYTA [Suspect]
     Active Substance: AXITINIB
     Indication: FATIGUE
     Dosage: 7 MG, 2X/DAY (EVERY 12 HOURS, TAKE ONE 5MG TABLET WITH TWO 1MG TABLETS)
     Route: 048
     Dates: start: 201912, end: 2020

REACTIONS (3)
  - Renal disorder [Unknown]
  - Renal impairment [Unknown]
  - Seasonal allergy [Unknown]
